FAERS Safety Report 16012236 (Version 3)
Quarter: 2019Q1

REPORT INFORMATION
  Report Type: Spontaneous
  Country: US (occurrence: US)
  Receive Date: 20190227
  Receipt Date: 20190306
  Transmission Date: 20190418
  Serious: Yes (Other)
  Sender: FDA-Public Use
  Company Number: US-PFIZER INC-2019085038

PATIENT
  Age: 35 Year
  Sex: Female

DRUGS (9)
  1. FENTANYL CITRATE. [Suspect]
     Active Substance: FENTANYL CITRATE
     Indication: PAIN
     Dosage: 100 UG, UNK
     Route: 042
  2. PHYSOSTIGMINE [Concomitant]
     Active Substance: PHYSOSTIGMINE
     Dosage: 1 MG, 2X/DAY
     Route: 042
  3. EPINEPHRINE. [Concomitant]
     Active Substance: EPINEPHRINE
     Indication: ANAESTHESIA
     Dosage: UNK
  4. ATROPINE SULFATE. [Interacting]
     Active Substance: ATROPINE SULFATE
     Indication: BRADYCARDIA
     Dosage: 0.4 MG, UNK
     Route: 042
  5. LIDOCAINE. [Concomitant]
     Active Substance: LIDOCAINE
     Indication: ANAESTHESIA
     Dosage: 3 ML, UNK
  6. LIDOCAINE. [Concomitant]
     Active Substance: LIDOCAINE
     Dosage: 20 ML, UNK
  7. FENTANYL CITRATE. [Interacting]
     Active Substance: FENTANYL CITRATE
     Dosage: 100 UG, UNK (MIXED IN 8 ML STERILE PRESERVATIVE-FREE SALINE) (A RATE OF 50UG/HR)
     Route: 008
  8. PHYSOSTIGMINE [Concomitant]
     Active Substance: PHYSOSTIGMINE
     Dosage: 2 MG, UNK
     Route: 042
  9. DROPERIDOL. [Interacting]
     Active Substance: DROPERIDOL
     Indication: NAUSEA
     Dosage: 1.25 MG, UNK
     Route: 042

REACTIONS (4)
  - Delirium [Recovered/Resolved]
  - Drug interaction [Unknown]
  - Product use in unapproved indication [Unknown]
  - Extrapyramidal disorder [Unknown]
